FAERS Safety Report 8826614 (Version 2)
Quarter: 2012Q4

REPORT INFORMATION
  Report Type: 
  Country: CN (occurrence: CN)
  Receive Date: 20121005
  Receipt Date: 20121022
  Transmission Date: 20130627
  Serious: Yes (Other)
  Sender: FDA-Public Use
  Company Number: CN-GLAXOSMITHKLINE-B0835075A

PATIENT
  Age: 31 Year
  Sex: Female
  Weight: 48 kg

DRUGS (2)
  1. CUTIVATE [Suspect]
     Indication: NEURODERMATITIS
     Route: 061
     Dates: start: 20120922
  2. UREA CREAM [Concomitant]
     Indication: NEURODERMATITIS
     Route: 061
     Dates: start: 20120922

REACTIONS (1)
  - Vaginal haemorrhage [Recovered/Resolved]
